FAERS Safety Report 4389074-4 (Version None)
Quarter: 2004Q3

REPORT INFORMATION
  Report Type: 
  Country: None (occurrence: None)
  Receive Date: 20040702
  Receipt Date: 20040623
  Transmission Date: 20050211
  Serious: Yes (Other)
  Sender: FDA-Public Use
  Company Number: 200416341GDDC

PATIENT
  Sex: 0

DRUGS (3)
  1. NATRIX [Suspect]
     Indication: HYPERTENSION
     Route: 048
     Dates: start: 20021025, end: 20040401
  2. ACE INHIBITOR NOS [Concomitant]
     Dosage: DOSE: UNK
     Dates: start: 20021011
  3. AMLODIN [Concomitant]
     Dosage: DOSE: UNK
     Dates: start: 20021011

REACTIONS (1)
  - RENAL FAILURE [None]
